FAERS Safety Report 6457591-9 (Version None)
Quarter: 2009Q4

REPORT INFORMATION
  Report Type: 
  Country: None (occurrence: None)
  Receive Date: 20091024
  Receipt Date: 20091109
  Transmission Date: 20100525
  Serious: Yes (Death, Hospitalization)
  Sender: FDA-Public Use
  Company Number: 2009AC000250

PATIENT
  Age: 71 Year
  Sex: Female

DRUGS (21)
  1. DIGOXIN [Suspect]
     Dosage: 0.125 MG;QD;PO
     Route: 048
     Dates: start: 20070601
  2. PROTONIX [Concomitant]
  3. COREG [Concomitant]
  4. PROCARDIA [Concomitant]
  5. ALBUTEROL SULFATE AUTOHALER [Concomitant]
  6. OXYGEN [Concomitant]
  7. TORADOL [Concomitant]
  8. ALTACE [Concomitant]
  9. CORDARONE [Concomitant]
  10. XOPENEX [Concomitant]
  11. LASIX [Concomitant]
  12. AMIODARONE HCL [Concomitant]
  13. POTASSIUM CHLORIDE [Concomitant]
  14. NEURONTIN [Concomitant]
  15. PROTONIX [Concomitant]
  16. AMIODARONE HCL [Concomitant]
  17. LOVENOX [Concomitant]
  18. ASPIRIN [Concomitant]
  19. PROCARDIA XL [Concomitant]
  20. POTASSIUM [Concomitant]
  21. TPN [Concomitant]

REACTIONS (32)
  - ABDOMINAL PAIN [None]
  - ASTHENIA [None]
  - BALANCE DISORDER [None]
  - BLINDNESS UNILATERAL [None]
  - BRAIN NATRIURETIC PEPTIDE INCREASED [None]
  - CACHEXIA [None]
  - CARDIAC FAILURE CONGESTIVE [None]
  - CHEST PAIN [None]
  - COLITIS [None]
  - CONVULSION [None]
  - CORONARY ARTERY DISEASE [None]
  - DECREASED APPETITE [None]
  - DEHYDRATION [None]
  - DIARRHOEA [None]
  - DIZZINESS [None]
  - ECONOMIC PROBLEM [None]
  - FAILURE TO THRIVE [None]
  - FATIGUE [None]
  - GAIT DISTURBANCE [None]
  - HYPERTENSION [None]
  - INJURY [None]
  - KLEBSIELLA INFECTION [None]
  - LIVER FUNCTION TEST ABNORMAL [None]
  - MALNUTRITION [None]
  - NAUSEA [None]
  - PAIN [None]
  - PERIPHERAL ARTERIAL OCCLUSIVE DISEASE [None]
  - PROTHROMBIN TIME PROLONGED [None]
  - RECTAL ABSCESS [None]
  - RECTAL HAEMORRHAGE [None]
  - THERAPEUTIC AGENT TOXICITY [None]
  - URINARY TRACT INFECTION [None]
